FAERS Safety Report 4716738-2 (Version None)
Quarter: 2005Q3

REPORT INFORMATION
  Report Type: 
  Country: None (occurrence: None)
  Receive Date: 20050719
  Receipt Date: 20050706
  Transmission Date: 20060218
  Serious: Yes (Life-Threatening)
  Sender: FDA-Public Use
  Company Number: FR-NOVOPROD-245352

PATIENT
  Age: 34 Year
  Sex: Male

DRUGS (6)
  1. NOVORAPID FLEXPEN [Suspect]
     Indication: DIABETES MELLITUS
     Dosage: 36 IU, UNK
  2. LANTUS [Concomitant]
     Dosage: 30 IU, UNK
     Route: 058
  3. MODECATE ^SANOFI WINTHROP^ [Concomitant]
     Dosage: 75 MG, QD
     Route: 030
  4. XANAX [Concomitant]
     Dosage: 2 TAB, QD
     Route: 048
  5. TERCIAN [Concomitant]
     Dosage: 100 MG, TID
     Route: 048
  6. ROHYPNOL [Concomitant]
     Dosage: 1 TAB, QD

REACTIONS (8)
  - COMA [None]
  - ELECTROENCEPHALOGRAM ABNORMAL [None]
  - EXTENSOR PLANTAR RESPONSE [None]
  - HYPERTONIA [None]
  - LIVER DISORDER [None]
  - MYDRIASIS [None]
  - TONGUE BITING [None]
  - URINARY INCONTINENCE [None]
